FAERS Safety Report 19727829 (Version 1)
Quarter: 2021Q3

REPORT INFORMATION
  Report Type: Spontaneous
  Country: US (occurrence: US)
  Receive Date: 20210820
  Receipt Date: 20210820
  Transmission Date: 20211014
  Serious: No
  Sender: FDA-Public Use
  Company Number: None

PATIENT
  Sex: Male
  Weight: 67.95 kg

DRUGS (17)
  1. BICALUTAMIDE. [Concomitant]
     Active Substance: BICALUTAMIDE
  2. FENTANYL. [Concomitant]
     Active Substance: FENTANYL
  3. HYDRALAZINE [Concomitant]
     Active Substance: HYDRALAZINE HYDROCHLORIDE
  4. METOPROLOL. [Concomitant]
     Active Substance: METOPROLOL
  5. PROSTATE [Concomitant]
     Active Substance: DIETARY SUPPLEMENT
  6. CHOLECALCIFEROL [Concomitant]
     Active Substance: CHOLECALCIFEROL
  7. FERROUS FUMARATE [Concomitant]
     Active Substance: FERROUS FUMARATE
  8. TELMISARTAN?HCTZ [Concomitant]
     Active Substance: HYDROCHLOROTHIAZIDE\TELMISARTAN
  9. ATORVASTATIN [Concomitant]
     Active Substance: ATORVASTATIN
  10. HYDROCODONE?APAP [Concomitant]
     Active Substance: ACETAMINOPHEN\HYDROCODONE
  11. ABIRATERONE. [Suspect]
     Active Substance: ABIRATERONE ACETATE
     Indication: PROSTATE CANCER
     Route: 048
     Dates: start: 20210707, end: 20210820
  12. ASCORBIC ACID. [Concomitant]
     Active Substance: ASCORBIC ACID
  13. FINASTERIDE. [Concomitant]
     Active Substance: FINASTERIDE
  14. FISH OIL [Concomitant]
     Active Substance: FISH OIL
  15. PREDNISONE. [Concomitant]
     Active Substance: PREDNISONE
  16. CYANOCOBALAMIN. [Concomitant]
     Active Substance: CYANOCOBALAMIN
  17. MULTIVITAMIN [Concomitant]
     Active Substance: VITAMINS

REACTIONS (1)
  - Death [None]
